FAERS Safety Report 8402295-6 (Version None)
Quarter: 2012Q2

REPORT INFORMATION
  Report Type: 
  Country: None (occurrence: None)
  Receive Date: 20120601
  Receipt Date: 20120521
  Transmission Date: 20120825
  Serious: Yes (Hospitalization)
  Sender: FDA-Public Use
  Company Number: FR-BRISTOL-MYERS SQUIBB COMPANY-16630659

PATIENT
  Age: 64 Year
  Sex: Male

DRUGS (14)
  1. NEXIUM [Concomitant]
  2. VECTIBIX [Concomitant]
     Indication: HEAD AND NECK CANCER
  3. ANTIHISTAMINE NOS [Concomitant]
     Indication: PREMEDICATION
  4. TRAMADOL HCL [Concomitant]
  5. BICARBONATE [Concomitant]
     Dosage: MOUTH WASH
  6. GASTROGRAFIN [Concomitant]
  7. ERBITUX [Suspect]
     Indication: HEAD AND NECK CANCER
     Route: 042
     Dates: start: 20120329, end: 20120329
  8. OMEPRAZOLE [Concomitant]
  9. FENOFIBRATE [Concomitant]
  10. ACETAMINOPHEN [Concomitant]
  11. TIAPRIDAL [Concomitant]
  12. ASPIRIN [Concomitant]
  13. CISPLATIN [Concomitant]
     Indication: HEAD AND NECK CANCER
  14. PLAVIX [Concomitant]
     Indication: PREMEDICATION

REACTIONS (4)
  - HYPOTENSION [None]
  - SEPTIC SHOCK [None]
  - ANAPHYLACTIC SHOCK [None]
  - PERIPHERAL ISCHAEMIA [None]
